FAERS Safety Report 5294711-6 (Version None)
Quarter: 2007Q2

REPORT INFORMATION
  Report Type: 
  Country: None (occurrence: None)
  Receive Date: 20070409
  Receipt Date: 20070409
  Transmission Date: 20071010
  Serious: Yes (Hospitalization)
  Sender: FDA-Public Use
  Company Number: None

PATIENT
  Age: 46 Year
  Sex: Male

DRUGS (3)
  1. INVEGA [Suspect]
     Indication: ANXIETY
     Dosage: 6MG  DAILY  PO
     Route: 048
     Dates: start: 20070211, end: 20070214
  2. LAMICTAL [Concomitant]
  3. CLONAZEPAM [Concomitant]

REACTIONS (2)
  - ATRIAL FIBRILLATION [None]
  - CONVULSION [None]
